FAERS Safety Report 8252969-5 (Version None)
Quarter: 2012Q2

REPORT INFORMATION
  Report Type: 
  Country: None (occurrence: None)
  Receive Date: 20120402
  Receipt Date: 20120327
  Transmission Date: 20120825
  Serious: Yes (Hospitalization)
  Sender: FDA-Public Use
  Company Number: US-MERCK-1203USA03786

PATIENT
  Sex: Male

DRUGS (1)
  1. INVANZ [Suspect]
     Indication: COLITIS ULCERATIVE
     Route: 042
     Dates: start: 20120301, end: 20120327

REACTIONS (1)
  - WHITE BLOOD CELL COUNT INCREASED [None]
